FAERS Safety Report 7417972-3 (Version None)
Quarter: 2011Q2

REPORT INFORMATION
  Report Type: 
  Country: None (occurrence: None)
  Receive Date: 20110415
  Receipt Date: 20110407
  Transmission Date: 20111010
  Serious: Yes (Hospitalization)
  Sender: FDA-Public Use
  Company Number: US-ROCHE-716012

PATIENT
  Sex: Female
  Weight: 68 kg

DRUGS (7)
  1. TOCILIZUMAB [Suspect]
     Indication: RHEUMATOID ARTHRITIS
     Dosage: LAST DOSE PRIOR TO SAE: 17 JUNE 2010.
     Route: 042
     Dates: start: 20090618
  2. VICODIN [Concomitant]
     Dates: start: 20090101
  3. PRILOSEC [Concomitant]
     Dates: start: 20081101
  4. LORAZEPAM [Concomitant]
     Dates: start: 19950601
  5. FOLIC ACID [Concomitant]
     Dates: start: 19940101
  6. AMLODIPINE [Concomitant]
     Dates: start: 20071101
  7. PLACEBO [Suspect]
     Indication: RHEUMATOID ARTHRITIS
     Dosage: LAST DOSE PRIOR TO SAE: 17 JUNE 2010.
     Route: 048
     Dates: start: 20090616

REACTIONS (1)
  - COLPOCELE [None]
